FAERS Safety Report 7885132-8 (Version None)
Quarter: 2011Q4

REPORT INFORMATION
  Report Type: 
  Country: None (occurrence: None)
  Receive Date: 20111102
  Receipt Date: 20111028
  Transmission Date: 20120403
  Serious: Yes (Life-Threatening, Hospitalization, Other)
  Sender: FDA-Public Use
  Company Number: JP-B.I. PHARMACEUTICALS,INC./RIDGEFIELD-2011-BP-24915NB

PATIENT
  Sex: Female
  Weight: 40.7 kg

DRUGS (14)
  1. BONOTEO [Concomitant]
     Dosage: 1 MG
     Route: 048
  2. ATELEC [Concomitant]
     Dosage: 20 MG
     Route: 048
  3. CARVEDILOL [Concomitant]
     Dosage: 5 MG
     Route: 048
  4. HYALEIN [Concomitant]
     Route: 031
  5. KENTAN [Concomitant]
     Route: 048
  6. NITRAZEPAM [Concomitant]
     Dosage: 25 MG
     Route: 048
  7. VESICARE OD [Concomitant]
     Dosage: 5 MG
     Route: 048
  8. RABEPRAZOLE SODIUM [Concomitant]
     Dosage: 10 MG
     Route: 048
  9. PRAVASTATIN SODIUM [Concomitant]
     Dosage: 5 MG
     Route: 048
  10. EDIROL [Concomitant]
     Dosage: 0.75 MG
     Route: 048
  11. IMIDAPRIL HYDROCHLORIDE [Concomitant]
     Dosage: 10 MG
     Route: 048
  12. PRADAXA [Suspect]
     Indication: ATRIAL FIBRILLATION
     Dosage: 220 MG
     Route: 048
     Dates: end: 20111016
  13. NEUQUINON [Concomitant]
     Dosage: 20 MG
     Route: 048
  14. DIQUAS [Concomitant]
     Route: 031

REACTIONS (7)
  - GASTRIC ULCER HAEMORRHAGE [None]
  - TRANSFUSION-TRANSMITTED INFECTIOUS DISEASE [None]
  - ANAEMIA [None]
  - CARDIAC FAILURE [None]
  - HYPOTENSION [None]
  - GINGIVAL BLEEDING [None]
  - HAEMORRHAGE SUBCUTANEOUS [None]
